FAERS Safety Report 4758732-1 (Version None)
Quarter: 2005Q3

REPORT INFORMATION
  Report Type: 
  Country: None (occurrence: None)
  Receive Date: 20050831
  Receipt Date: 20050831
  Transmission Date: 20060218
  Serious: No
  Sender: FDA-Public Use
  Company Number: None

PATIENT
  Sex: Female
  Weight: 74.8435 kg

DRUGS (2)
  1. TEMAZEPAM [Suspect]
     Indication: INSOMNIA
     Dosage: 1 MG  DAILY
     Dates: start: 20031211
  2. CLONAZEPAM [Suspect]
     Indication: RESTLESS LEGS SYNDROME
     Dosage: 1 MG DAILY
     Dates: start: 20031214

REACTIONS (2)
  - DRUG INEFFECTIVE [None]
  - THERAPEUTIC RESPONSE UNEXPECTED WITH DRUG SUBSTITUTION [None]
